FAERS Safety Report 12317742 (Version 1)
Quarter: 2016Q2

REPORT INFORMATION
  Report Type: Spontaneous
  Country: US (occurrence: US)
  Receive Date: 20160429
  Receipt Date: 20160429
  Transmission Date: 20160815
  Serious: Yes (Other)
  Sender: FDA-Public Use
  Company Number: US-MUNDIPHARMA DS AND PHARMACOVIGILANCE-USA-2016-0130508

PATIENT
  Sex: Female
  Weight: 71.66 kg

DRUGS (3)
  1. ZANAFLEX [Suspect]
     Active Substance: TIZANIDINE HYDROCHLORIDE
     Indication: SPINAL CORD INJURY
     Dosage: 4 MG, UNK
     Route: 048
  2. XANAX [Suspect]
     Active Substance: ALPRAZOLAM
     Indication: ANXIETY
     Dosage: 1 MG, QID
     Route: 048
     Dates: start: 1985, end: 201511
  3. OXYCODONE HCL CR TABLETS (SIMILAR TO NDA 22-272) [Suspect]
     Active Substance: OXYCODONE HYDROCHLORIDE
     Indication: BREAKTHROUGH PAIN
     Dosage: UNK
     Route: 048
     Dates: end: 201511

REACTIONS (10)
  - Feeling abnormal [Recovered/Resolved]
  - Obesity [Unknown]
  - Blood pressure increased [Not Recovered/Not Resolved]
  - Panic attack [Unknown]
  - Decreased interest [Not Recovered/Not Resolved]
  - Swelling [Not Recovered/Not Resolved]
  - Feeling hot [Not Recovered/Not Resolved]
  - Breast swelling [Not Recovered/Not Resolved]
  - Pain [Unknown]
  - Anger [Not Recovered/Not Resolved]
